FAERS Safety Report 11012489 (Version 1)
Quarter: 2015Q2

REPORT INFORMATION
  Report Type: Spontaneous
  Country: US (occurrence: None)
  Receive Date: 20150410
  Receipt Date: 20150410
  Transmission Date: 20150821
  Serious: Yes (Death, Hospitalization, Other)
  Sender: FDA-Public Use
  Company Number: None

PATIENT
  Age: 66 Year
  Sex: Male
  Weight: 45.36 kg

DRUGS (1)
  1. POTIGA [Suspect]
     Active Substance: EZOGABINE
     Indication: EPILEPSY
     Dosage: 1 PILL THREE TIMES DAILY --

REACTIONS (9)
  - Multiple fractures [None]
  - Injury [None]
  - Dizziness [None]
  - Fall [None]
  - Seizure [None]
  - Disorientation [None]
  - Somnolence [None]
  - Pallor [None]
  - Complex partial seizures [None]
